FAERS Safety Report 8874409 (Version 2)
Quarter: 2012Q4

REPORT INFORMATION
  Report Type: 
  Country: JP (occurrence: JP)
  Receive Date: 20121031
  Receipt Date: 20121107
  Transmission Date: 20130627
  Serious: Yes (Life-Threatening, Other)
  Sender: FDA-Public Use
  Company Number: JP-MERCK-1210JPN013624

PATIENT
  Age: 26 Year
  Sex: Male

DRUGS (2)
  1. DECADRON [Suspect]
     Indication: DEXAMETHASONE SUPPRESSION TEST
     Dosage: 1 mg, UNK
     Route: 048
  2. DECADRON [Suspect]
     Dosage: 8 mg, UNK
     Route: 048

REACTIONS (1)
  - Hypertensive crisis [Recovering/Resolving]
